FAERS Safety Report 21816801 (Version 1)
Quarter: 2023Q1

REPORT INFORMATION
  Report Type: Spontaneous
  Country: DK (occurrence: DK)
  Receive Date: 20230104
  Receipt Date: 20230104
  Transmission Date: 20230418
  Serious: Yes (Hospitalization)
  Sender: FDA-Public Use
  Company Number: None

PATIENT
  Age: 3 Decade
  Sex: Male
  Weight: 84 kg

DRUGS (1)
  1. CITALOPRAM [Suspect]
     Active Substance: CITALOPRAM HYDROBROMIDE
     Indication: Depression
     Dosage: 40MG/D,2 TABS BID,STRENGTH:UNK.WITHDRAWN GRADUALLY
     Route: 048
     Dates: start: 2009, end: 2021

REACTIONS (6)
  - Libido decreased [Recovered/Resolved]
  - Erectile dysfunction [Recovered/Resolved]
  - Mania [Recovered/Resolved]
  - Electric shock sensation [Recovered/Resolved]
  - Weight increased [Recovered/Resolved]
  - Dissociation [Recovered/Resolved]

NARRATIVE: CASE EVENT DATE: 20100101
